FAERS Safety Report 7998292-5 (Version None)
Quarter: 2011Q4

REPORT INFORMATION
  Report Type: 
  Country: None (occurrence: None)
  Receive Date: 20111221
  Receipt Date: 20110622
  Transmission Date: 20120403
  Serious: No
  Sender: FDA-Public Use
  Company Number: US-GLAXOSMITHKLINE-A0932468A

PATIENT
  Sex: Male

DRUGS (1)
  1. LOVAZA [Suspect]
     Route: 048

REACTIONS (3)
  - HYPERSENSITIVITY [None]
  - RHINORRHOEA [None]
  - ILL-DEFINED DISORDER [None]
